FAERS Safety Report 11228047 (Version 1)
Quarter: 2015Q2

REPORT INFORMATION
  Report Type: Spontaneous
  Country: GB (occurrence: None)
  Receive Date: 20150626
  Receipt Date: 20150626
  Transmission Date: 20150821
  Serious: Yes (Other)
  Sender: FDA-Public Use
  Company Number: CO-PL-UK-2015-079

PATIENT
  Sex: Female

DRUGS (8)
  1. PLAQUENIL [Suspect]
     Active Substance: HYDROXYCHLOROQUINE SULFATE
     Indication: RHEUMATOID ARTHRITIS
     Route: 048
     Dates: start: 2012
  2. ADCAL (UNKNOWN) (CARBAZOCHROME) [Concomitant]
  3. GABAPENTIN (UNKNOWN) (GABAPENTIN) [Concomitant]
     Active Substance: GABAPENTIN
  4. PLAQUENIL [Suspect]
     Active Substance: HYDROXYCHLOROQUINE SULFATE
     Indication: SJOGREN^S SYNDROME
     Route: 048
     Dates: start: 2012
  5. TELEBRIX (UNKNOWN) (IOXITALAMATE MEGLUMINE, IOXITALAMATE SODIUM) [Concomitant]
  6. AMITRIPTYLINE (UNKNOWN) (AMITRIPTYLINE) [Concomitant]
  7. SYSTANE (UNKNOWN) (PROPYLENE GLYCOL, MACROGOL 400) [Concomitant]
  8. SYMBICORT (UNKNOWN) (FORMOTEROL FUMARATE, BUDESONIDE) [Concomitant]

REACTIONS (2)
  - Blepharitis [None]
  - Dry eye [None]
